FAERS Safety Report 17423044 (Version 11)
Quarter: 2021Q3

REPORT INFORMATION
  Report Type: Spontaneous
  Country: US (occurrence: US)
  Receive Date: 20200216
  Receipt Date: 20210719
  Transmission Date: 20211014
  Serious: Yes (Hospitalization, Other)
  Sender: FDA-Public Use
  Company Number: US-BRISTOL-MYERS SQUIBB COMPANY-BMS-2020-010617

PATIENT
  Age: 78 Year
  Sex: Male

DRUGS (4)
  1. LOSARTAN. [Concomitant]
     Active Substance: LOSARTAN
     Indication: PRODUCT USED FOR UNKNOWN INDICATION
     Dosage: UNK
     Route: 065
  2. SPRYCEL [Suspect]
     Active Substance: DASATINIB
     Indication: CHRONIC MYELOID LEUKAEMIA
     Dosage: UNK, QD
     Route: 048
     Dates: start: 20161026
  3. LASIX [Concomitant]
     Active Substance: FUROSEMIDE
     Indication: PRODUCT USED FOR UNKNOWN INDICATION
     Dosage: UNK
     Route: 065
  4. SPRYCEL [Suspect]
     Active Substance: DASATINIB
     Dosage: 50 MILLIGRAM, QD
     Route: 048
     Dates: start: 201708

REACTIONS (22)
  - Blood pressure fluctuation [Unknown]
  - Weight decreased [Unknown]
  - Renal disorder [Unknown]
  - Gastric ulcer [Not Recovered/Not Resolved]
  - Stress [Unknown]
  - Vertigo [Unknown]
  - Dehydration [Unknown]
  - Anaemia [Unknown]
  - Asthenia [Unknown]
  - Weight increased [Unknown]
  - Dizziness [Unknown]
  - Vision blurred [Unknown]
  - Pulmonary oedema [Unknown]
  - Cataract [Unknown]
  - Muscle spasms [Not Recovered/Not Resolved]
  - Cardiac failure congestive [Unknown]
  - Dyspnoea [Unknown]
  - Loose tooth [Unknown]
  - Arthritis [Unknown]
  - Arthralgia [Unknown]
  - Eye disorder [Unknown]
  - Eye injury [Unknown]

NARRATIVE: CASE EVENT DATE: 201707
